FAERS Safety Report 20526443 (Version 2)
Quarter: 2022Q1

REPORT INFORMATION
  Report Type: Report from Study
  Country: US (occurrence: US)
  Receive Date: 20220228
  Receipt Date: 20220309
  Transmission Date: 20220424
  Serious: Yes (Other)
  Sender: FDA-Public Use
  Company Number: US-TAKEDA-2022TUS011605

PATIENT
  Age: 46 Year
  Sex: Female

DRUGS (6)
  1. PARATHYROID HORMONE [Suspect]
     Active Substance: PARATHYROID HORMONE
     Indication: Hypoparathyroidism
     Dosage: 25 MICROGRAM, BID
     Route: 058
     Dates: start: 20200801
  2. PARATHYROID HORMONE [Suspect]
     Active Substance: PARATHYROID HORMONE
     Indication: Hypoparathyroidism
     Dosage: 25 MICROGRAM, BID
     Route: 058
     Dates: start: 20200801
  3. PARATHYROID HORMONE [Suspect]
     Active Substance: PARATHYROID HORMONE
     Indication: Hypoparathyroidism
     Dosage: 25 MICROGRAM, BID
     Route: 058
     Dates: start: 20200801
  4. PARATHYROID HORMONE [Suspect]
     Active Substance: PARATHYROID HORMONE
     Dosage: 25 MICROGRAM, BID
     Route: 058
     Dates: start: 20200901
  5. PARATHYROID HORMONE [Suspect]
     Active Substance: PARATHYROID HORMONE
     Dosage: 25 MICROGRAM, BID
     Route: 058
     Dates: start: 20200901
  6. PARATHYROID HORMONE [Suspect]
     Active Substance: PARATHYROID HORMONE
     Dosage: 25 MICROGRAM, BID
     Route: 058
     Dates: start: 20200901

REACTIONS (5)
  - Ovarian cyst [Not Recovered/Not Resolved]
  - Migraine [Recovering/Resolving]
  - Vaginal haemorrhage [Not Recovered/Not Resolved]
  - Multiple use of single-use product [Recovered/Resolved]
  - Product distribution issue [Recovered/Resolved]

NARRATIVE: CASE EVENT DATE: 20220128
